FAERS Safety Report 7190368-8 (Version None)
Quarter: 2010Q4

REPORT INFORMATION
  Report Type: 
  Country: None (occurrence: None)
  Receive Date: 20101210
  Receipt Date: 20101126
  Transmission Date: 20110411
  Serious: Yes (Hospitalization)
  Sender: FDA-Public Use
  Company Number: 2010-3556

PATIENT
  Age: 12 Year
  Sex: Male

DRUGS (11)
  1. INCRELEX [Suspect]
     Indication: INSULIN-LIKE GROWTH FACTOR DECREASED
     Dosage: SEE IMAGE
     Dates: start: 20081209, end: 20081215
  2. INCRELEX [Suspect]
     Indication: INSULIN-LIKE GROWTH FACTOR DECREASED
     Dosage: SEE IMAGE
     Dates: start: 20081216, end: 20081222
  3. INCRELEX [Suspect]
     Indication: INSULIN-LIKE GROWTH FACTOR DECREASED
     Dosage: SEE IMAGE
     Dates: start: 20081223
  4. CREON [Concomitant]
  5. UVESTEROL (UVESTEROL) [Concomitant]
  6. URSODIOL [Concomitant]
  7. BECONASE [Concomitant]
  8. OMEPRAZOLE [Concomitant]
  9. DEMORELLE (ALL OTHER THERAPEUTIC PRODUCTS) [Concomitant]
  10. RISPERDAL [Concomitant]
  11. PULMOZYME [Concomitant]

REACTIONS (2)
  - ABDOMINAL PAIN [None]
  - CONSTIPATION [None]
